FAERS Safety Report 8431833-2 (Version None)
Quarter: 2012Q2

REPORT INFORMATION
  Report Type: 
  Country: None (occurrence: None)
  Receive Date: 20120607
  Receipt Date: 20120607
  Transmission Date: 20120825
  Serious: Yes (Hospitalization)
  Sender: FDA-Public Use
  Company Number: None

PATIENT
  Sex: Male
  Weight: 88 kg

DRUGS (4)
  1. CYCLOPHOSPHAMIDE [Suspect]
     Dosage: 2095 MG
  2. DOXORUBICIN HCL [Suspect]
     Dosage: 112 MG
  3. ETOPOSIDE [Suspect]
     Dosage: 560 MG
  4. VINCRISTINE SULFATE [Suspect]
     Dosage: 3.12 MG

REACTIONS (6)
  - DIZZINESS [None]
  - FEBRILE NEUTROPENIA [None]
  - ORTHOSTATIC HYPOTENSION [None]
  - CHILLS [None]
  - ASTHENIA [None]
  - SYNCOPE [None]
